FAERS Safety Report 7744243-8 (Version None)
Quarter: 2011Q3

REPORT INFORMATION
  Report Type: 
  Country: None (occurrence: None)
  Receive Date: 20110912
  Receipt Date: 20110902
  Transmission Date: 20111222
  Serious: Yes (Other)
  Sender: FDA-Public Use
  Company Number: PHHY2011SE08131

PATIENT
  Sex: Female

DRUGS (1)
  1. AMOXICILLIN AND CLAVULANATE POTASSIUM [Suspect]
     Indication: ANIMAL BITE
     Route: 048
     Dates: end: 20090723

REACTIONS (6)
  - ABDOMINAL PAIN [None]
  - HYPERTENSION [None]
  - HEADACHE [None]
  - RASH [None]
  - HEPATIC ENZYME INCREASED [None]
  - PRURITUS [None]
